FAERS Safety Report 19846609 (Version 1)
Quarter: 2021Q3

REPORT INFORMATION
  Report Type: Spontaneous
  Country: US (occurrence: US)
  Receive Date: 20210917
  Receipt Date: 20210917
  Transmission Date: 20211014
  Serious: Yes (Hospitalization)
  Sender: FDA-Public Use
  Company Number: None

PATIENT
  Age: 57 Year
  Sex: Female
  Weight: 66.7 kg

DRUGS (1)
  1. NIVOLUMAB [Suspect]
     Active Substance: NIVOLUMAB
     Dates: start: 20190325, end: 20210722

REACTIONS (4)
  - Tachycardia [None]
  - Dyspnoea [None]
  - SARS-CoV-2 test positive [None]
  - Hypotension [None]

NARRATIVE: CASE EVENT DATE: 20210916
